FAERS Safety Report 12296729 (Version 3)
Quarter: 2016Q3

REPORT INFORMATION
  Report Type: Spontaneous
  Country: ES (occurrence: ES)
  Receive Date: 20160422
  Receipt Date: 20160901
  Transmission Date: 20161109
  Serious: Yes (Life-Threatening, Other)
  Sender: FDA-Public Use
  Company Number: ES-BAYER-2015-071900

PATIENT
  Age: 34 Year
  Sex: Female
  Weight: 70 kg

DRUGS (1)
  1. JAYDESS [Suspect]
     Active Substance: LEVONORGESTREL
     Indication: CONTRACEPTION
     Dosage: 14 MCG/24HR, CONT
     Route: 015
     Dates: start: 20150210, end: 20150317

REACTIONS (8)
  - Ectopic pregnancy with contraceptive device [Recovered/Resolved]
  - Abdominal pain lower [Recovered/Resolved]
  - Vaginal haemorrhage [Recovered/Resolved]
  - Haematosalpinx [Recovered/Resolved]
  - Ruptured ectopic pregnancy [Recovered/Resolved]
  - Pelvic fluid collection [Recovered/Resolved]
  - Peritoneal haemorrhage [Recovered/Resolved]
  - Drug ineffective [Recovered/Resolved]

NARRATIVE: CASE EVENT DATE: 20150317
